FAERS Safety Report 26067701 (Version 1)
Quarter: 2025Q4

REPORT INFORMATION
  Report Type: Report from Study
  Country: CA (occurrence: CA)
  Receive Date: 20251120
  Receipt Date: 20251120
  Transmission Date: 20260118
  Serious: Yes (Death, Other)
  Sender: GLAXOSMITHKLINE
  Company Number: CA-GSK-CA2025062826

PATIENT
  Age: 67 Year
  Sex: Female

DRUGS (2)
  1. MOMELOTINIB [Suspect]
     Active Substance: MOMELOTINIB
     Indication: Myelofibrosis
     Dosage: 200 MG, QD
  2. AMLODIPINE [Suspect]
     Active Substance: AMLODIPINE BESYLATE
     Indication: Hypertension
     Dosage: UNK

REACTIONS (12)
  - Death [Fatal]
  - Nausea [Unknown]
  - Influenza [Unknown]
  - Dizziness [Unknown]
  - Lethargy [Unknown]
  - Disturbance in attention [Unknown]
  - Headache [Unknown]
  - Hypertension [Unknown]
  - Restless legs syndrome [Unknown]
  - Hypotension [Unknown]
  - Blood glucose decreased [Unknown]
  - Malaise [Unknown]

NARRATIVE: CASE EVENT DATE: 20250527
